FAERS Safety Report 8310907-0 (Version None)
Quarter: 2012Q2

REPORT INFORMATION
  Report Type: 
  Country: None (occurrence: None)
  Receive Date: 20120425
  Receipt Date: 20090225
  Transmission Date: 20120825
  Serious: Yes (Death, Other)
  Sender: FDA-Public Use
  Company Number: ES-ROCHE-617081

PATIENT
  Sex: Female
  Weight: 69 kg

DRUGS (5)
  1. XELODA [Suspect]
     Indication: COLON CANCER
     Dosage: FREQUENCY: EVERY 12 HOURS DURING 14 DAYS, EACH 21 DAYS
     Route: 048
     Dates: start: 20081215, end: 20090120
  2. XELODA [Suspect]
     Dosage: FREQUENCY: EVERY 12 HOURS DURING 14 DAYS, EACH 21 DAYS
     Route: 048
     Dates: start: 20090126, end: 20090208
  3. PANTOPRAZOLE [Concomitant]
     Indication: PROPHYLAXIS AGAINST GASTROINTESTINAL ULCER
     Route: 048
  4. NORVASC [Concomitant]
     Indication: HYPERTENSION
     Route: 048
  5. ATORVASTATIN [Concomitant]
     Indication: DYSLIPIDAEMIA
     Route: 048

REACTIONS (5)
  - GASTROINTESTINAL TOXICITY [None]
  - INTESTINAL PERFORATION [None]
  - MUCOSAL INFLAMMATION [None]
  - BONE MARROW FAILURE [None]
  - PYREXIA [None]
